FAERS Safety Report 8560978-1 (Version None)
Quarter: 2012Q3

REPORT INFORMATION
  Report Type: 
  Country: None (occurrence: None)
  Receive Date: 20120802
  Receipt Date: 20120725
  Transmission Date: 20120928
  Serious: Yes (Hospitalization, Other)
  Sender: FDA-Public Use
  Company Number: US-ELI_LILLY_AND_COMPANY-US201107002802

PATIENT
  Sex: Female
  Weight: 64.399 kg

DRUGS (5)
  1. FORTEO [Suspect]
     Dosage: 20 UG, QD
     Dates: start: 20120505
  2. COUMADIN [Concomitant]
     Dosage: UNK
  3. FORTEO [Suspect]
     Indication: OSTEOPOROSIS
     Dosage: 20 UG, QD
     Dates: start: 20110701
  4. FORTEO [Suspect]
     Dosage: 20 UG, QD
  5. IRON [Concomitant]
     Dosage: UNK

REACTIONS (18)
  - HIP FRACTURE [None]
  - DECREASED APPETITE [None]
  - BACK PAIN [None]
  - NERVOUSNESS [None]
  - HEADACHE [None]
  - PAIN [None]
  - PAIN IN EXTREMITY [None]
  - MOVEMENT DISORDER [None]
  - FALL [None]
  - EATING DISORDER [None]
  - SCOLIOSIS [None]
  - DRUG DOSE OMISSION [None]
  - HEAD INJURY [None]
  - MUSCULOSKELETAL PAIN [None]
  - THINKING ABNORMAL [None]
  - FEMUR FRACTURE [None]
  - CONCUSSION [None]
  - MALAISE [None]
